FAERS Safety Report 9830847 (Version 2)
Quarter: 2014Q1

REPORT INFORMATION
  Report Type: Spontaneous
  Country: US (occurrence: US)
  Receive Date: 20140120
  Receipt Date: 20140120
  Transmission Date: 20141002
  Serious: Yes (Hospitalization, Disabling, Other)
  Sender: FDA-Public Use
  Company Number: US-009507513-1108USA01137

PATIENT
  Sex: Female
  Weight: 84.82 kg

DRUGS (3)
  1. FOSAMAX [Suspect]
     Indication: OSTEOPOROSIS
     Dosage: 70 MG, QW
     Route: 048
     Dates: start: 2000, end: 201006
  2. VYTORIN [Concomitant]
     Route: 048
  3. TRICOR (FENOFIBRATE) [Concomitant]

REACTIONS (52)
  - Femur fracture [Not Recovered/Not Resolved]
  - Peripheral artery stenosis [Unknown]
  - Spinal fracture [Unknown]
  - Aortic stenosis [Unknown]
  - Blindness transient [Unknown]
  - Renal failure [Unknown]
  - Road traffic accident [Unknown]
  - Intestinal angina [Unknown]
  - Haemorrhagic anaemia [Unknown]
  - Carotid artery disease [Unknown]
  - Aortic stenosis [Unknown]
  - Peripheral vascular disorder [Unknown]
  - Type 2 diabetes mellitus [Unknown]
  - Colitis ischaemic [Unknown]
  - Aortic aneurysm [Unknown]
  - Vitamin D deficiency [Unknown]
  - Arteriosclerosis [Unknown]
  - Cardiac failure congestive [Unknown]
  - Aortic calcification [Unknown]
  - Blood creatinine increased [Unknown]
  - Troponin increased [Unknown]
  - Iron deficiency anaemia [Unknown]
  - Diarrhoea [Unknown]
  - Arthralgia [Unknown]
  - Colitis ischaemic [Unknown]
  - Coccydynia [Not Recovered/Not Resolved]
  - Spondylitis [Unknown]
  - Spondylolisthesis [Unknown]
  - Duodenitis [Recovered/Resolved]
  - Rectal haemorrhage [Unknown]
  - Gastroenteritis [Unknown]
  - Scapula fracture [Recovered/Resolved]
  - Mitral valve disease [Unknown]
  - Acute sinusitis [Unknown]
  - Intestinal angina [Unknown]
  - Oedema [Unknown]
  - Rotator cuff syndrome [Unknown]
  - Fall [Unknown]
  - Carotid artery stenosis [Unknown]
  - Accelerated hypertension [Unknown]
  - Myocardial ischaemia [Unknown]
  - Lumbar spinal stenosis [Unknown]
  - Intervertebral disc degeneration [Unknown]
  - Intervertebral disc protrusion [Unknown]
  - Myocardial ischaemia [Unknown]
  - Urinary incontinence [Unknown]
  - Haemorrhoids [Unknown]
  - Anaemia of chronic disease [Unknown]
  - Diabetes mellitus inadequate control [Unknown]
  - Gastrooesophageal reflux disease [Unknown]
  - Nausea [Unknown]
  - Pain in extremity [Not Recovered/Not Resolved]
